FAERS Safety Report 6924035-X (Version None)
Quarter: 2010Q3

REPORT INFORMATION
  Report Type: 
  Country: None (occurrence: None)
  Receive Date: 20100813
  Receipt Date: 20100803
  Transmission Date: 20110219
  Serious: Yes (Hospitalization)
  Sender: FDA-Public Use
  Company Number: DE-ABBOTT-10P-062-0661688-00

PATIENT
  Sex: Female
  Weight: 45 kg

DRUGS (2)
  1. HUMIRA [Suspect]
     Indication: CROHN'S DISEASE
     Dosage: INITIAL DOSE 80 MG
     Dates: start: 20100513
  2. HUMIRA [Suspect]
     Dates: end: 20100708

REACTIONS (4)
  - ANAL ABSCESS [None]
  - ANAL FISTULA [None]
  - DRUG INEFFECTIVE [None]
  - WEIGHT DECREASED [None]
